FAERS Safety Report 4777113-8 (Version None)
Quarter: 2005Q3

REPORT INFORMATION
  Report Type: 
  Country: None (occurrence: None)
  Receive Date: 20050921
  Receipt Date: 20050908
  Transmission Date: 20060218
  Serious: Yes (Other)
  Sender: FDA-Public Use
  Company Number: 2005113337

PATIENT
  Sex: Male
  Weight: 53.0709 kg

DRUGS (16)
  1. NEURONTIN [Suspect]
     Indication: CONVULSION
     Dosage: 300 MG (300 MG, 1 IN 1 D),
     Dates: start: 20040322, end: 20050101
  2. GABAPENTIN [Suspect]
     Indication: CONVULSION
     Dates: start: 20050101
  3. LAMICTAL [Suspect]
     Indication: PARTIAL SEIZURES
     Dates: start: 20040901, end: 20050615
  4. TUMS (CALCIUM CARBONATE) [Suspect]
     Indication: ILL-DEFINED DISORDER
     Dates: start: 20040101
  5. KLONOPIN [Concomitant]
  6. PROTONIX [Concomitant]
  7. ZYRTEC [Concomitant]
  8. RHINOCORT [Concomitant]
  9. OXYBUTYNIN CHLORIDE [Concomitant]
  10. ALLERGY MEDICATION (ALLERGY MEDICATION) [Concomitant]
  11. VITAMINS (VITAMINS) [Concomitant]
  12. DITROPAN XL [Concomitant]
  13. DEPAKOTE [Concomitant]
  14. ENTEX (GUAIFENESIN, PHENYLEPHRINE HYDROCHLORIDE, PHENYLPROPANOLAMINE H [Concomitant]
  15. ALL OTHER NON-THERAPEUTIC PRODUCTS (ALL OTHER NON-THERAPEUTIC PRODUCTS [Concomitant]
  16. UROXATRAL [Concomitant]

REACTIONS (24)
  - ALOPECIA [None]
  - ANGER [None]
  - ASTHENIA [None]
  - BACK PAIN [None]
  - BARIUM SWALLOW ABNORMAL [None]
  - BODY HEIGHT INCREASED [None]
  - BONE DISORDER [None]
  - COUGH [None]
  - DEPRESSION [None]
  - DRUG INTERACTION [None]
  - ENDOSCOPY ABNORMAL [None]
  - ERECTILE DYSFUNCTION [None]
  - FEELING ABNORMAL [None]
  - GASTROOESOPHAGEAL REFLUX DISEASE [None]
  - HYPERSOMNIA [None]
  - INITIAL INSOMNIA [None]
  - MOOD ALTERED [None]
  - PAIN [None]
  - PARTIAL SEIZURES [None]
  - PHARYNGEAL OEDEMA [None]
  - SLEEP TALKING [None]
  - TENDON DISORDER [None]
  - WEIGHT INCREASED [None]
  - YAWNING [None]
